FAERS Safety Report 5444200-0 (Version None)
Quarter: 2007Q3

REPORT INFORMATION
  Report Type: 
  Country: None (occurrence: None)
  Receive Date: 20070906
  Receipt Date: 20070827
  Transmission Date: 20080115
  Serious: Yes (Other)
  Sender: FDA-Public Use
  Company Number: US-NOVOPROD-261530

PATIENT

DRUGS (4)
  1. LEVEMIR [Suspect]
     Indication: TYPE 1 DIABETES MELLITUS
     Dosage: 26 IU, QD
     Dates: start: 20061001, end: 20070301
  2. ZESTRIL [Suspect]
     Indication: DRUG USE FOR UNKNOWN INDICATION
  3. SLOW RELEASE IRON [Suspect]
     Indication: DRUG USE FOR UNKNOWN INDICATION
  4. HUMALOG [Concomitant]
     Indication: TYPE 1 DIABETES MELLITUS
     Dosage: 4-5 IU AM + 12-15 IU PM
     Route: 058

REACTIONS (2)
  - ANGINA PECTORIS [None]
  - DYSPNOEA [None]
